FAERS Safety Report 8918656 (Version 3)
Quarter: 2013Q3

REPORT INFORMATION
  Report Type: Report from Study
  Country: US (occurrence: US)
  Receive Date: 20121120
  Receipt Date: 20130906
  Transmission Date: 20140515
  Serious: Yes (Hospitalization, Other)
  Sender: FDA-Public Use
  Company Number: US-ELI_LILLY_AND_COMPANY-US201211003941

PATIENT
  Age: 55 Year
  Sex: Male

DRUGS (7)
  1. TERIPARATIDE [Suspect]
     Indication: OSTEOPOROSIS
     Dosage: 20 UG, QD
     Route: 065
     Dates: start: 20050201, end: 20060201
  2. TERIPARATIDE [Suspect]
     Dosage: 20 UG, QD
     Route: 065
     Dates: start: 20120823
  3. TERIPARATIDE [Suspect]
     Dosage: 20 UG, QD
     Route: 065
     Dates: start: 20120823
  4. PROLASTIN [Concomitant]
     Indication: ALPHA-1 ANTI-TRYPSIN DEFICIENCY
     Dosage: UNK, WEEKLY (1/W)
  5. LORTAB [Concomitant]
     Indication: PAIN
     Dosage: .5 DF, QD
  6. ADVAIR [Concomitant]
  7. OSTEO BI-FLEX [Concomitant]

REACTIONS (11)
  - Malaise [Unknown]
  - Pneumonia [Unknown]
  - Total lung capacity abnormal [Unknown]
  - Dyspnoea [Unknown]
  - Overdose [Unknown]
  - Anger [Unknown]
  - Back pain [Unknown]
  - Osteoarthritis [Unknown]
  - Intervertebral disc protrusion [Unknown]
  - Spinal fracture [Unknown]
  - Drug dose omission [Unknown]
